FAERS Safety Report 18110623 (Version 1)
Quarter: 2020Q3

REPORT INFORMATION
  Report Type: Spontaneous
  Country: CO (occurrence: CO)
  Receive Date: 20200804
  Receipt Date: 20200804
  Transmission Date: 20201103
  Serious: Yes (Other)
  Sender: FDA-Public Use
  Company Number: CO-EMD SERONO-9177348

PATIENT
  Age: 71 Year
  Sex: Male
  Weight: 71 kg

DRUGS (12)
  1. REVOLADE [Suspect]
     Active Substance: ELTROMBOPAG
     Dosage: TOOK REVOLADE IN INTERSPERSED DAYS
     Route: 048
  2. LOSARTAN. [Suspect]
     Active Substance: LOSARTAN
     Indication: PRODUCT USED FOR UNKNOWN INDICATION
  3. ENOXAPARIN [Concomitant]
     Active Substance: ENOXAPARIN
     Indication: PRODUCT USED FOR UNKNOWN INDICATION
  4. PREDNISOLONE. [Concomitant]
     Active Substance: PREDNISOLONE
     Indication: PRODUCT USED FOR UNKNOWN INDICATION
  5. METFORMIN [Suspect]
     Active Substance: METFORMIN HYDROCHLORIDE
     Indication: PRODUCT USED FOR UNKNOWN INDICATION
  6. REVOLADE [Suspect]
     Active Substance: ELTROMBOPAG
     Indication: IMMUNE THROMBOCYTOPENIA
     Dosage: 1 TABLET OF 50 MG AND 1/2 TABLET OF 50 MG (75 MG)
     Route: 048
     Dates: start: 20170916, end: 20170926
  7. REVOLADE [Suspect]
     Active Substance: ELTROMBOPAG
     Dosage: RESUMED ON 03 JAN (OF UNSPECIFIED YEAR)
     Route: 048
  8. REVOLADE [Suspect]
     Active Substance: ELTROMBOPAG
     Dosage: DOSE DECREASED AND WAS DISCONTINUED IN DEC (OF UNSPECIFIED YEAR)
     Route: 048
  9. TAMSULOSIN [Suspect]
     Active Substance: TAMSULOSIN
     Indication: PRODUCT USED FOR UNKNOWN INDICATION
  10. CORTISONE [Concomitant]
     Active Substance: CORTISONE
     Indication: PRODUCT USED FOR UNKNOWN INDICATION
  11. MAGNESIUM [Concomitant]
     Active Substance: MAGNESIUM
     Indication: PRODUCT USED FOR UNKNOWN INDICATION
  12. REVOLADE [Suspect]
     Active Substance: ELTROMBOPAG
     Indication: IMMUNE THROMBOCYTOPENIA
     Route: 048
     Dates: start: 20170829

REACTIONS (11)
  - Calculus bladder [Unknown]
  - Platelet count decreased [Not Recovered/Not Resolved]
  - Body height decreased [Unknown]
  - Platelet count increased [Recovering/Resolving]
  - Salivary hypersecretion [Unknown]
  - Hypertension [Unknown]
  - Liver disorder [Unknown]
  - Weight increased [Recovering/Resolving]
  - Eructation [Unknown]
  - Dizziness [Unknown]
  - Diarrhoea [Unknown]

NARRATIVE: CASE EVENT DATE: 20170914
